FAERS Safety Report 8346651-3 (Version None)
Quarter: 2012Q2

REPORT INFORMATION
  Report Type: 
  Country: None (occurrence: None)
  Receive Date: 20120509
  Receipt Date: 20120507
  Transmission Date: 20120825
  Serious: Yes (Death, Hospitalization)
  Sender: FDA-Public Use
  Company Number: PHHY2011JP58459

PATIENT
  Sex: Male

DRUGS (2)
  1. TEGRETOL [Suspect]
     Indication: GUILLAIN-BARRE SYNDROME
     Dosage: 100 MG, BID
     Route: 048
     Dates: start: 20100113, end: 20100226
  2. ALLOPURINOL [Concomitant]
     Dosage: UNK UKN, UNK
     Dates: start: 20091221, end: 20100112

REACTIONS (15)
  - BLOOD LACTATE DEHYDROGENASE INCREASED [None]
  - PERITONITIS [None]
  - PLATELET COUNT DECREASED [None]
  - ACUTE ABDOMEN [None]
  - ASCITES [None]
  - DIVERTICULITIS [None]
  - PYREXIA [None]
  - RESPIRATORY FAILURE [None]
  - DRUG RASH WITH EOSINOPHILIA AND SYSTEMIC SYMPTOMS [None]
  - PANCYTOPENIA [None]
  - WHITE BLOOD CELL COUNT DECREASED [None]
  - RASH GENERALISED [None]
  - BLOOD ALKALINE PHOSPHATASE INCREASED [None]
  - HUMAN HERPESVIRUS 6 INFECTION [None]
  - CYTOMEGALOVIRUS TEST POSITIVE [None]
